FAERS Safety Report 5382439-3 (Version None)
Quarter: 2007Q2

REPORT INFORMATION
  Report Type: 
  Country: None (occurrence: None)
  Receive Date: 20070629
  Receipt Date: 20061011
  Transmission Date: 20071010
  Serious: Yes (Other)
  Sender: FDA-Public Use
  Company Number: 2006119124

PATIENT
  Age: 30 Year
  Sex: Male
  Weight: 90.7194 kg

DRUGS (2)
  1. ZOLOFT [Suspect]
     Indication: DEPRESSION
     Dosage: 50 MG (50 MG, 1 IN 1 D, ORAL
     Route: 048
     Dates: start: 20060401, end: 20060907
  2. ZOLOFT [Suspect]
     Indication: MENTAL DISORDER
     Dosage: 50 MG (50 MG, 1 IN 1 D, ORAL
     Route: 048
     Dates: start: 20060401, end: 20060907

REACTIONS (2)
  - HALLUCINATION, AUDITORY [None]
  - PHYSICAL ASSAULT [None]
